FAERS Safety Report 9333339 (Version 1)
Quarter: 2013Q2

REPORT INFORMATION
  Report Type: Spontaneous
  Country: AU (occurrence: None)
  Receive Date: 20130604
  Receipt Date: 20130604
  Transmission Date: 20140414
  Serious: Yes (Hospitalization, Other)
  Sender: FDA-Public Use
  Company Number: 2013AP005486

PATIENT
  Sex: Female

DRUGS (2)
  1. SERTRALINE HYDROCHLORIDE (SERTRALINE HYDROCHLORIDE) [Suspect]
  2. CLOZAPINE [Suspect]
     Dates: start: 20000712

REACTIONS (4)
  - Maternal drugs affecting foetus [None]
  - Caesarean section [None]
  - Congenital intestinal obstruction [None]
  - Kidney enlargement [None]
